FAERS Safety Report 5103600-9 (Version None)
Quarter: 2006Q3

REPORT INFORMATION
  Report Type: 
  Country: None (occurrence: None)
  Receive Date: 20060913
  Receipt Date: 20060906
  Transmission Date: 20061208
  Serious: Yes (Hospitalization)
  Sender: FDA-Public Use
  Company Number: JP-AVENTIS-200612773JP

PATIENT

DRUGS (2)
  1. DAONIL [Suspect]
  2. NICOTINE GUM [Concomitant]

REACTIONS (2)
  - ANAPHYLACTOID SHOCK [None]
  - LARYNGEAL OBSTRUCTION [None]
